FAERS Safety Report 23081174 (Version 1)
Quarter: 2023Q4

REPORT INFORMATION
  Report Type: Other
  Country: FR (occurrence: None)
  Receive Date: 20231018
  Receipt Date: 20231018
  Transmission Date: 20240110
  Serious: Yes (Other)
  Sender: FDA-Public Use
  Company Number: FR-ROCHE-3438415

PATIENT

DRUGS (5)
  1. TOCILIZUMAB [Suspect]
     Active Substance: TOCILIZUMAB
     Indication: Acute myeloid leukaemia
     Route: 042
  2. TOCILIZUMAB [Suspect]
     Active Substance: TOCILIZUMAB
     Route: 042
  3. TOCILIZUMAB [Suspect]
     Active Substance: TOCILIZUMAB
     Route: 042
  4. IDARUBICIN [Suspect]
     Active Substance: IDARUBICIN
     Indication: Acute myeloid leukaemia
     Dosage: DAY 1 TO DAY 5
     Route: 042
  5. CYTARABINE [Suspect]
     Active Substance: CYTARABINE
     Indication: Acute myeloid leukaemia
     Dosage: DAY 1 TO DAY 7
     Route: 042

REACTIONS (62)
  - Anaemia [Unknown]
  - Large intestine perforation [Unknown]
  - Pseudomonal bacteraemia [Unknown]
  - Sepsis [Unknown]
  - Septic shock [Unknown]
  - Renal cell carcinoma [Unknown]
  - Haemorrhage intracranial [Unknown]
  - Acute kidney injury [Unknown]
  - Shock haemorrhagic [Unknown]
  - Lymphadenopathy [Unknown]
  - Neutropenia [Unknown]
  - Thrombocytopenia [Unknown]
  - Vertigo [Unknown]
  - Eye disorder [Unknown]
  - Lacrimation decreased [Unknown]
  - Periorbital oedema [Unknown]
  - Photophobia [Unknown]
  - Abdominal pain [Unknown]
  - Colitis [Unknown]
  - Constipation [Unknown]
  - Diarrhoea [Unknown]
  - Haemorrhoids [Unknown]
  - Lip dry [Unknown]
  - Nausea [Unknown]
  - Vomiting [Unknown]
  - Mucosal inflammation [Unknown]
  - Pain [Unknown]
  - Pyrexia [Unknown]
  - Ulcer [Unknown]
  - Appendicitis [Unknown]
  - Bacillus infection [Unknown]
  - Bacteraemia [Unknown]
  - Bacteroides bacteraemia [Unknown]
  - Escherichia bacteraemia [Unknown]
  - Escherichia urinary tract infection [Unknown]
  - Fungal infection [Unknown]
  - Klebsiella bacteraemia [Unknown]
  - Pneumonia [Unknown]
  - Staphylococcal bacteraemia [Unknown]
  - Tooth infection [Unknown]
  - Urinary tract infection staphylococcal [Unknown]
  - Eschar [Unknown]
  - Transfusion-related immunomodulation reaction [Unknown]
  - Hyperkalaemia [Unknown]
  - Hypokalaemia [Unknown]
  - Magnesium deficiency [Unknown]
  - Malnutrition [Unknown]
  - Starvation [Unknown]
  - Headache [Unknown]
  - Parkinsonism [Unknown]
  - Insomnia [Unknown]
  - Bladder dilatation [Unknown]
  - Urinary retention [Unknown]
  - Dyspnoea [Unknown]
  - Dry skin [Unknown]
  - Erythema [Unknown]
  - Rash [Unknown]
  - Rash morbilliform [Unknown]
  - Rash pruritic [Unknown]
  - Skin mass [Unknown]
  - Deep vein thrombosis [Unknown]
  - Hypertension [Unknown]
